FAERS Safety Report 12469005 (Version 1)
Quarter: 2016Q2

REPORT INFORMATION
  Report Type: Spontaneous
  Country: JP (occurrence: JP)
  Receive Date: 20160615
  Receipt Date: 20160615
  Transmission Date: 20160815
  Serious: Yes (Death, Other)
  Sender: FDA-Public Use
  Company Number: PHJP2016JP016239

PATIENT
  Age: 46 Year
  Sex: Female

DRUGS (1)
  1. SANDOSTATINA LAR IM INJECTION [Suspect]
     Active Substance: OCTREOTIDE ACETATE
     Indication: NEUROENDOCRINE TUMOUR
     Dosage: UNK
     Route: 030

REACTIONS (6)
  - Drug resistance [Unknown]
  - Spinal cord compression [Unknown]
  - Tumour embolism [Unknown]
  - Malignant neoplasm progression [Unknown]
  - Metastases to adrenals [Unknown]
  - Neuroendocrine tumour [Fatal]
